FAERS Safety Report 21702731 (Version 2)
Quarter: 2022Q4

REPORT INFORMATION
  Report Type: Spontaneous
  Country: TW (occurrence: TW)
  Receive Date: 20221209
  Receipt Date: 20221220
  Transmission Date: 20230112
  Serious: Yes (Death, Life-Threatening, Hospitalization, Other)
  Sender: FDA-Public Use
  Company Number: None

PATIENT
  Age: 42 Year
  Sex: Male

DRUGS (24)
  1. DICLOFENAC [Suspect]
     Active Substance: DICLOFENAC
     Indication: Muscular weakness
     Dosage: UNK
     Route: 065
  2. DICLOFENAC [Suspect]
     Active Substance: DICLOFENAC
     Indication: Pyrexia
     Dosage: UNK
     Route: 065
  3. DICLOFENAC [Suspect]
     Active Substance: DICLOFENAC
     Indication: Malaise
  4. DICLOFENAC [Suspect]
     Active Substance: DICLOFENAC
     Indication: Oropharyngeal pain
  5. HYDROCORTISONE [Suspect]
     Active Substance: HYDROCORTISONE
     Indication: Vanishing bile duct syndrome
     Dosage: UNK
     Route: 065
  6. HYDROCORTISONE [Suspect]
     Active Substance: HYDROCORTISONE
     Indication: Stevens-Johnson syndrome
  7. MYCOPHENOLATE MOFETIL [Suspect]
     Active Substance: MYCOPHENOLATE MOFETIL
     Indication: Vanishing bile duct syndrome
     Dosage: 250 MILLIGRAM, BID (EVERY 12 HOUR) CAPSULE FORM
     Route: 048
  8. MYCOPHENOLATE MOFETIL [Suspect]
     Active Substance: MYCOPHENOLATE MOFETIL
     Dosage: 750 MILLIGRAM, BID (EVERY 12 HOUR) CAPSULE FORM
     Route: 048
  9. METHYLPREDNISOLONE [Suspect]
     Active Substance: METHYLPREDNISOLONE
     Indication: Stevens-Johnson syndrome
     Dosage: UNK EQUIVALENT TO 1.2-2.6 MG/KG OF PREDNISONE PER DAY
     Route: 042
  10. METHYLPREDNISOLONE [Suspect]
     Active Substance: METHYLPREDNISOLONE
     Indication: Vanishing bile duct syndrome
     Dosage: UNK  EQUIVALENT OF 2.6 MG/KG OF PREDNISONE PER DAY
     Route: 042
  11. PREDNISOLONE [Suspect]
     Active Substance: PREDNISOLONE
     Indication: Vanishing bile duct syndrome
     Dosage: UNK
     Route: 065
  12. PREDNISOLONE [Suspect]
     Active Substance: PREDNISOLONE
     Indication: Stevens-Johnson syndrome
  13. ACETAMINOPHEN [Concomitant]
     Active Substance: ACETAMINOPHEN
     Indication: Muscular weakness
     Dosage: UNK
     Route: 065
  14. ACETAMINOPHEN [Concomitant]
     Active Substance: ACETAMINOPHEN
     Indication: Oropharyngeal pain
  15. ACETAMINOPHEN [Concomitant]
     Active Substance: ACETAMINOPHEN
     Indication: Malaise
  16. ACETAMINOPHEN [Concomitant]
     Active Substance: ACETAMINOPHEN
     Indication: Pyrexia
  17. FAMOTIDINE [Concomitant]
     Active Substance: FAMOTIDINE
     Indication: Muscular weakness
     Dosage: UNK
     Route: 065
  18. FAMOTIDINE [Concomitant]
     Active Substance: FAMOTIDINE
     Indication: Pyrexia
  19. FAMOTIDINE [Concomitant]
     Active Substance: FAMOTIDINE
     Indication: Malaise
  20. FAMOTIDINE [Concomitant]
     Active Substance: FAMOTIDINE
     Indication: Oropharyngeal pain
  21. MEFENAMIC ACID [Concomitant]
     Active Substance: MEFENAMIC ACID
     Indication: Muscular weakness
     Dosage: UNK
     Route: 065
  22. MEFENAMIC ACID [Concomitant]
     Active Substance: MEFENAMIC ACID
     Indication: Pyrexia
     Dosage: UNK
     Route: 065
  23. MEFENAMIC ACID [Concomitant]
     Active Substance: MEFENAMIC ACID
     Indication: Malaise
  24. MEFENAMIC ACID [Concomitant]
     Active Substance: MEFENAMIC ACID
     Indication: Oropharyngeal pain

REACTIONS (10)
  - Colitis [Fatal]
  - Cytomegalovirus infection [Fatal]
  - General physical health deterioration [Fatal]
  - Haemorrhage [Fatal]
  - Haemophagocytic lymphohistiocytosis [Fatal]
  - Hypovolaemic shock [Fatal]
  - Impaired healing [Fatal]
  - Septic shock [Fatal]
  - Stevens-Johnson syndrome [Recovered/Resolved]
  - Vanishing bile duct syndrome [Recovered/Resolved]
